FAERS Safety Report 14722681 (Version 3)
Quarter: 2018Q3

REPORT INFORMATION
  Report Type: Spontaneous
  Country: US (occurrence: US)
  Receive Date: 20180405
  Receipt Date: 20180725
  Transmission Date: 20181010
  Serious: Yes (Other)
  Sender: FDA-Public Use
  Company Number: US-PFIZER INC-2018135064

PATIENT

DRUGS (8)
  1. NEXIUM [Suspect]
     Active Substance: ESOMEPRAZOLE MAGNESIUM
     Dosage: UNK, AS DIRECTED
     Route: 048
     Dates: start: 200111, end: 201709
  2. DEXILANT [Suspect]
     Active Substance: DEXLANSOPRAZOLE
     Dosage: UNK, AS DIRECTED
     Route: 048
     Dates: start: 200111, end: 201709
  3. PRILOSEC OTC [Suspect]
     Active Substance: OMEPRAZOLE MAGNESIUM
     Dosage: UNK, AS DIRECTED
     Route: 048
     Dates: start: 200111, end: 201709
  4. PROTONIX [Suspect]
     Active Substance: PANTOPRAZOLE SODIUM
     Dosage: UNK, AS DIRECTED
     Route: 048
     Dates: start: 200111, end: 201709
  5. PREVACID 24 HR [Suspect]
     Active Substance: LANSOPRAZOLE
     Dosage: UNK, AS DIRECTED
     Dates: start: 200111, end: 201709
  6. NEXIUM 24HR [Suspect]
     Active Substance: ESOMEPRAZOLE MAGNESIUM
     Dosage: UNK, AS DIRECTED
     Route: 048
     Dates: end: 201709
  7. PREVACID [Suspect]
     Active Substance: LANSOPRAZOLE
     Dosage: UNK, AS DIRECTED
     Route: 048
     Dates: start: 200111, end: 201709
  8. PRILOSEC [Suspect]
     Active Substance: OMEPRAZOLE MAGNESIUM
     Dosage: UNK, AS DIRECTED
     Route: 048
     Dates: start: 200111, end: 201709

REACTIONS (1)
  - Acute kidney injury [Unknown]
